FAERS Safety Report 7355913-8 (Version None)
Quarter: 2011Q1

REPORT INFORMATION
  Report Type: 
  Country: None (occurrence: None)
  Receive Date: 20110316
  Receipt Date: 20110314
  Transmission Date: 20110831
  Serious: Yes (Hospitalization, Other)
  Sender: FDA-Public Use
  Company Number: US-ROXANE LABORATORIES, INC.-2011-RO-00303RO

PATIENT
  Age: 55 Year
  Sex: Female

DRUGS (4)
  1. AROMASIN [Suspect]
     Indication: BREAST CANCER
  2. DOXORUBICIN HCL [Suspect]
     Indication: BREAST CANCER
  3. CYCLOPHOSPHAMIDE [Suspect]
     Indication: BREAST CANCER
  4. HAART THERAPY [Suspect]
     Indication: HIV TEST POSITIVE

REACTIONS (4)
  - CEREBRAL TOXOPLASMOSIS [None]
  - PERICARDIAL EFFUSION MALIGNANT [None]
  - MALIGNANT PLEURAL EFFUSION [None]
  - FEBRILE NEUTROPENIA [None]
